FAERS Safety Report 5704966-9 (Version None)
Quarter: 2008Q2

REPORT INFORMATION
  Report Type: 
  Country: None (occurrence: None)
  Receive Date: 20080414
  Receipt Date: 20080402
  Transmission Date: 20081010
  Serious: Yes (Hospitalization, Disabling)
  Sender: FDA-Public Use
  Company Number: US-SANOFI-SYNTHELABO-A03200801352

PATIENT
  Sex: Female

DRUGS (2)
  1. GLIPIZIDE [Concomitant]
     Indication: DIABETES MELLITUS
     Dosage: UNK
     Route: 065
  2. AMBIEN [Suspect]
     Indication: DRUG USE FOR UNKNOWN INDICATION
     Dosage: TOOK 1/2 TABLET THE NIGHT BEFORE AT ABOUT 12 PM AND THE OTHER HALF AT ABOUT 3:30 AM
     Route: 048

REACTIONS (13)
  - AMNESIA [None]
  - BLOOD GLUCOSE INCREASED [None]
  - CONTUSION [None]
  - FALL [None]
  - INTENTIONAL DRUG MISUSE [None]
  - MALAISE [None]
  - MUSCULOSKELETAL STIFFNESS [None]
  - PAIN [None]
  - PERIORBITAL HAEMATOMA [None]
  - SKIN LACERATION [None]
  - SLEEP-RELATED EATING DISORDER [None]
  - SOMNAMBULISM [None]
  - WOUND HAEMORRHAGE [None]
